FAERS Safety Report 7629445-3 (Version None)
Quarter: 2011Q3

REPORT INFORMATION
  Report Type: 
  Country: None (occurrence: None)
  Receive Date: 20110722
  Receipt Date: 20110713
  Transmission Date: 20111222
  Serious: Yes (Other)
  Sender: FDA-Public Use
  Company Number: US-JNJFOC-20110706298

PATIENT
  Sex: Female

DRUGS (1)
  1. PRECISE EXTRA STRENGTH PAIN RELIEVING CREAM [Suspect]
     Indication: BACK PAIN
     Dosage: ^NICKEL^ SIZE
     Route: 061
     Dates: start: 20110712, end: 20110713

REACTIONS (2)
  - APPLICATION SITE PAIN [None]
  - APPLICATION SITE VESICLES [None]
